FAERS Safety Report 6765920-1 (Version None)
Quarter: 2010Q2

REPORT INFORMATION
  Report Type: 
  Country: None (occurrence: None)
  Receive Date: 20100611
  Receipt Date: 20100608
  Transmission Date: 20101027
  Serious: Yes (Other)
  Sender: FDA-Public Use
  Company Number: CHPA2010CA06027

PATIENT
  Age: 58 Year
  Sex: Male
  Weight: 72.562 kg

DRUGS (7)
  1. HABITROL [Suspect]
     Indication: SMOKING CESSATION THERAPY
     Dosage: 14 MG, QD
     Route: 062
     Dates: start: 20100427, end: 20100511
  2. HABITROL [Suspect]
     Dosage: 21 MG, QD
     Route: 062
     Dates: start: 20100330, end: 20100426
  3. LIPITOR [Concomitant]
     Indication: BLOOD CHOLESTEROL INCREASED
  4. PANTOLOC ^BYK GULDEN^ [Concomitant]
     Indication: ABDOMINAL DISCOMFORT
  5. TRIMIPRAMINE [Concomitant]
     Indication: SLEEP DISORDER
  6. ATIVAN [Concomitant]
     Indication: STRESS
  7. ATIVAN [Concomitant]
     Indication: DEPRESSION

REACTIONS (12)
  - ANGER [None]
  - DEPRESSION [None]
  - INCREASED APPETITE [None]
  - INSOMNIA [None]
  - INTENTIONAL DRUG MISUSE [None]
  - IRRITABILITY [None]
  - MALAISE [None]
  - MOOD SWINGS [None]
  - NIGHTMARE [None]
  - SCREAMING [None]
  - STRESS [None]
  - WEIGHT INCREASED [None]
